FAERS Safety Report 24312509 (Version 1)
Quarter: 2024Q3

REPORT INFORMATION
  Report Type: Spontaneous
  Country: US (occurrence: US)
  Receive Date: 20240912
  Receipt Date: 20240912
  Transmission Date: 20241016
  Serious: Yes (Other)
  Sender: PFIZER
  Company Number: US-PFIZER INC-PV202400119170

PATIENT
  Age: 60 Year
  Sex: Female

DRUGS (7)
  1. RIFABUTIN [Suspect]
     Active Substance: RIFABUTIN
     Indication: Mycobacterium avium complex infection
     Dosage: UNK
     Dates: start: 2013
  2. RIFABUTIN [Suspect]
     Active Substance: RIFABUTIN
     Dosage: 3 TIMES WEEKLY
     Dates: start: 20170719, end: 201809
  3. RIFABUTIN [Suspect]
     Active Substance: RIFABUTIN
     Dosage: UNK
  4. AZITHROMYCIN [Suspect]
     Active Substance: AZITHROMYCIN
     Indication: Mycobacterium avium complex infection
     Dosage: UNK
     Dates: start: 2013
  5. AZITHROMYCIN [Suspect]
     Active Substance: AZITHROMYCIN
     Dosage: 3 TIMES WEEKLY
     Dates: start: 20170719
  6. ETHAMBUTOL [Suspect]
     Active Substance: ETHAMBUTOL HYDROCHLORIDE
     Indication: Mycobacterium avium complex infection
     Dosage: UNK
     Dates: start: 2013
  7. ETHAMBUTOL [Suspect]
     Active Substance: ETHAMBUTOL HYDROCHLORIDE
     Dosage: 3 TIMES WEEKLY
     Dates: start: 20170719

REACTIONS (5)
  - Leukopenia [Recovered/Resolved]
  - Therapeutic product effect decreased [Unknown]
  - Lung disorder [Recovered/Resolved]
  - Drug intolerance [Unknown]
  - Off label use [Unknown]

NARRATIVE: CASE EVENT DATE: 20170719
